FAERS Safety Report 5889180-9 (Version None)
Quarter: 2008Q3

REPORT INFORMATION
  Report Type: 
  Country: None (occurrence: None)
  Receive Date: 20080917
  Receipt Date: 20080904
  Transmission Date: 20090109
  Serious: Yes (Other)
  Sender: FDA-Public Use
  Company Number: MIN-00404

PATIENT
  Age: 47 Year
  Sex: Female

DRUGS (3)
  1. MINOCYCLINE HCL [Suspect]
     Indication: APHTHOUS STOMATITIS
  2. MINOCYCLINE HCL [Suspect]
     Indication: BEHCET'S SYNDROME
  3. MINOCYCLINE HCL [Suspect]
     Indication: MOUTH ULCERATION

REACTIONS (3)
  - GINGIVAL DISCOLOURATION [None]
  - THYROID CANCER [None]
  - TOOTH DISCOLOURATION [None]
